FAERS Safety Report 7347549-X (Version None)
Quarter: 2011Q1

REPORT INFORMATION
  Report Type: 
  Country: None (occurrence: None)
  Receive Date: 20110311
  Receipt Date: 20110301
  Transmission Date: 20110831
  Serious: Yes (Other)
  Sender: FDA-Public Use
  Company Number: US-JNJFOC-20110301725

PATIENT
  Age: 10 Year
  Sex: Male

DRUGS (3)
  1. INFLIXIMAB, RECOMBINANT [Suspect]
     Indication: PYODERMA GANGRENOSUM
     Route: 042
  2. TACROLIMUS [Concomitant]
     Indication: PYODERMA GANGRENOSUM
     Route: 048
  3. ETANERCEPT [Concomitant]
     Indication: PYODERMA GANGRENOSUM

REACTIONS (1)
  - DYSPLASTIC NAEVUS SYNDROME [None]
